FAERS Safety Report 5736317-8 (Version None)
Quarter: 2008Q2

REPORT INFORMATION
  Report Type: 
  Country: None (occurrence: None)
  Receive Date: 20080509
  Receipt Date: 20080425
  Transmission Date: 20081010
  Serious: Yes (Life-Threatening, Hospitalization, Other)
  Sender: FDA-Public Use
  Company Number: 2008S1007166

PATIENT
  Age: 44 Year
  Sex: Female
  Weight: 76.6579 kg

DRUGS (6)
  1. METHOTREXATE [Suspect]
     Indication: RHEUMATOID ARTHRITIS
     Dosage: ORAL
     Route: 048
  2. ADALIMUMAB (PLACEBO) [Suspect]
     Indication: RHEUMATOID ARTHRITIS
     Dosage: SUBCUTANEOUS
     Route: 058
     Dates: start: 20080107, end: 20080108
  3. AMLODIPINE BESILATE [Concomitant]
  4. IBUPROFEN [Concomitant]
  5. ACETAMINOPHEN [Concomitant]
  6. ACETAMINOPHEN W/ CODEINE [Concomitant]

REACTIONS (1)
  - RALES [None]
